FAERS Safety Report 7451846-7 (Version None)
Quarter: 2011Q2

REPORT INFORMATION
  Report Type: 
  Country: None (occurrence: None)
  Receive Date: 20110502
  Receipt Date: 20100527
  Transmission Date: 20111010
  Serious: No
  Sender: FDA-Public Use
  Company Number: US-ASTRAZENECA-2010SE24652

PATIENT

DRUGS (2)
  1. NEXIUM [Suspect]
     Route: 048
  2. FOSAMAX [Concomitant]

REACTIONS (1)
  - OSTEOPENIA [None]
